FAERS Safety Report 7845751 (Version 2)
Quarter: 2012Q4

REPORT INFORMATION
  Report Type: Report from Study
  Country: AU (occurrence: AU)
  Receive Date: 20110308
  Receipt Date: 20121029
  Transmission Date: 20130627
  Serious: Yes (Hospitalization)
  Sender: FDA-Public Use
  Company Number: AU-ROCHE-757060

PATIENT
  Age: 60 Year
  Sex: Male
  Weight: 87 kg

DRUGS (4)
  1. CAPECITABINE [Suspect]
     Indication: RECTAL CANCER
     Dosage: ACTUAL DOSE GIVEN: 1500 MG. LAST DOSE PRIOR TO SAE: 21 JANUARY 2011. THERAPY HELD.
     Route: 048
  2. OXALIPLATIN [Suspect]
     Indication: RECTAL CANCER
     Dosage: LAST DOSE PRIOR TO SAE: 17 JANUARY 2011. DOSE REDUCED.
     Route: 042
  3. PARACETAMOL [Concomitant]
     Indication: PROCTALGIA
     Dosage: FREQUENCY: PRN
     Route: 048
  4. METOCLOPRAMID [Concomitant]
     Indication: PROPHYLAXIS OF NAUSEA AND VOMITING
     Dosage: FREQUENCY: PRN
     Route: 048
     Dates: start: 20101220, end: 20101227

REACTIONS (1)
  - Gastroenteritis radiation [Recovered/Resolved]
